FAERS Safety Report 16234401 (Version 1)
Quarter: 2019Q2

REPORT INFORMATION
  Report Type: Spontaneous
  Country: US (occurrence: US)
  Receive Date: 20190319
  Receipt Date: 20190319
  Transmission Date: 20190711
  Serious: Yes (Other)
  Sender: FDA-Public Use
  Company Number: None

PATIENT
  Age: 84 Year
  Sex: Female
  Weight: 55.34 kg

DRUGS (9)
  1. SYNTHROID [Concomitant]
     Active Substance: LEVOTHYROXINE SODIUM
  2. VITAMIN D3 [Concomitant]
     Active Substance: CHOLECALCIFEROL
  3. DOXAZOSIN [Suspect]
     Active Substance: DOXAZOSIN\DOXAZOSIN MESYLATE
     Indication: HYPERTENSION
     Route: 048
     Dates: start: 1999, end: 201802
  4. HUMALOG [Concomitant]
     Active Substance: INSULIN LISPRO
  5. ASPIRIN. [Concomitant]
     Active Substance: ASPIRIN
  6. CLONIDINE HCL [Concomitant]
     Active Substance: CLONIDINE HYDROCHLORIDE
  7. DOXAZOSIN [Suspect]
     Active Substance: DOXAZOSIN\DOXAZOSIN MESYLATE
     Dosage: ?          OTHER FREQUENCY:1/2 AM 1/2 PM;?
     Route: 048
     Dates: start: 201902
  8. METOPROLOL SUCC ER [Concomitant]
     Active Substance: METOPROLOL SUCCINATE
  9. HUMULIN NOS [Concomitant]
     Active Substance: INSULIN HUMAN

REACTIONS (7)
  - Vision blurred [None]
  - Therapeutic product effect decreased [None]
  - Eye irritation [None]
  - Glaucoma [None]
  - Intraocular pressure increased [None]
  - Blood pressure increased [None]
  - Ocular hyperaemia [None]
